FAERS Safety Report 10793162 (Version 1)
Quarter: 2015Q1

REPORT INFORMATION
  Report Type: Spontaneous
  Country: FR (occurrence: FR)
  Receive Date: 20150213
  Receipt Date: 20150213
  Transmission Date: 20150721
  Serious: Yes (Death)
  Sender: FDA-Public Use
  Company Number: FR-ACTAVIS-2015-01723

PATIENT
  Age: 3 Year
  Sex: Female

DRUGS (2)
  1. OSELTAMIVIR (UNKNOWN) [Suspect]
     Active Substance: OSELTAMIVIR
     Indication: INFLUENZA
     Dosage: UNK
     Route: 065
  2. ACYCLOVIR (UNKNOWN) [Suspect]
     Active Substance: ACYCLOVIR
     Indication: INFLUENZA
     Dosage: UNK
     Route: 065

REACTIONS (12)
  - Histiocytosis haematophagic [None]
  - Rhabdomyolysis [None]
  - Disseminated intravascular coagulation [None]
  - Brain hypoxia [None]
  - Renal failure [None]
  - Brain death [None]
  - Hepatic failure [None]
  - Encephalitis influenzal [Fatal]
  - Thrombocytopenia [None]
  - Brain oedema [None]
  - Multi-organ failure [None]
  - Drug ineffective [Fatal]
